FAERS Safety Report 4811046-3 (Version None)
Quarter: 2005Q4

REPORT INFORMATION
  Report Type: 
  Country: None (occurrence: None)
  Receive Date: 20051027
  Receipt Date: 20051017
  Transmission Date: 20060501
  Serious: Yes (Hospitalization)
  Sender: FDA-Public Use
  Company Number: JP-JNJFOC-20050300921

PATIENT
  Sex: Female
  Weight: 40.5 kg

DRUGS (5)
  1. RISPERDAL [Suspect]
     Route: 048
  2. RISPERDAL [Suspect]
     Route: 048
  3. RISPERDAL [Suspect]
     Indication: SCHIZOPHRENIA
     Route: 048
  4. HALOPERIDOL DECANOATE [Concomitant]
     Indication: DRUG USE FOR UNKNOWN INDICATION
     Route: 042
     Dates: start: 20041008, end: 20041016
  5. FUROSEMIDE [Concomitant]
     Route: 048

REACTIONS (4)
  - ASTHENIA [None]
  - BREAST CANCER RECURRENT [None]
  - DYSPHAGIA [None]
  - PNEUMONIA ASPIRATION [None]
